FAERS Safety Report 8221448-3 (Version None)
Quarter: 2012Q1

REPORT INFORMATION
  Report Type: 
  Country: None (occurrence: None)
  Receive Date: 20120320
  Receipt Date: 20120315
  Transmission Date: 20120608
  Serious: Yes (Other)
  Sender: FDA-Public Use
  Company Number: US-PFIZER INC-2011305330

PATIENT
  Sex: Male

DRUGS (5)
  1. VENLAFAXINE HYDROCHLORIDE [Concomitant]
     Dosage: 75 MG, UNK
  2. LIPITOR [Suspect]
     Dosage: UNK
     Route: 048
  3. EFFEXOR XR [Suspect]
     Dosage: UNK
     Route: 048
  4. TOPROL-XL [Suspect]
     Dosage: UNK
     Route: 048
  5. NITROSTAT [Suspect]
     Dosage: UNK

REACTIONS (8)
  - MUSCLE SPASMS [None]
  - HYPOACUSIS [None]
  - ABDOMINAL PAIN UPPER [None]
  - MYDRIASIS [None]
  - DECREASED APPETITE [None]
  - DISORIENTATION [None]
  - FEELING ABNORMAL [None]
  - FEELING COLD [None]
